FAERS Safety Report 24138378 (Version 7)
Quarter: 2024Q3

REPORT INFORMATION
  Report Type: Spontaneous
  Country: US (occurrence: US)
  Receive Date: 20240725
  Receipt Date: 20240909
  Transmission Date: 20241016
  Serious: Yes (Hospitalization, Other)
  Sender: GILEAD
  Company Number: US-GILEAD-2024-0681862

PATIENT
  Age: 29 Year
  Sex: Male

DRUGS (1)
  1. YESCARTA [Suspect]
     Active Substance: AXICABTAGENE CILOLEUCEL
     Indication: Diffuse large B-cell lymphoma
     Dosage: UNK
     Route: 065
     Dates: start: 20240702, end: 20240702

REACTIONS (14)
  - Staphylococcal infection [Unknown]
  - Bacterial tracheitis [Unknown]
  - Pneumonia aspiration [Unknown]
  - Pneumonia [Unknown]
  - Myositis [Unknown]
  - Generalised tonic-clonic seizure [Unknown]
  - Cerebrovascular accident [Unknown]
  - Gaze palsy [Unknown]
  - Disseminated intravascular coagulation [Unknown]
  - Deep vein thrombosis [Unknown]
  - Immune effector cell-associated neurotoxicity syndrome [Unknown]
  - Cytokine release syndrome [Unknown]
  - Hypervolaemia [Unknown]
  - Mechanical ventilation [Not Recovered/Not Resolved]

NARRATIVE: CASE EVENT DATE: 20240703
